FAERS Safety Report 15564151 (Version 2)
Quarter: 2018Q4

REPORT INFORMATION
  Report Type: Spontaneous
  Country: US (occurrence: US)
  Receive Date: 20181030
  Receipt Date: 20181105
  Transmission Date: 20190205
  Serious: Yes (Other)
  Sender: FDA-Public Use
  Company Number: US-ROCHE-2206432

PATIENT
  Age: 35 Year
  Sex: Female

DRUGS (4)
  1. TEMOZOLOMIDE. [Suspect]
     Active Substance: TEMOZOLOMIDE
     Indication: PITUITARY TUMOUR BENIGN
     Route: 065
  2. KETOCONAZOLE. [Concomitant]
     Active Substance: KETOCONAZOLE
     Indication: HORMONE LEVEL ABNORMAL
  3. CABERGOLINE. [Concomitant]
     Active Substance: CABERGOLINE
     Indication: HORMONE LEVEL ABNORMAL
  4. CAPECITABINE. [Suspect]
     Active Substance: CAPECITABINE
     Indication: PITUITARY TUMOUR BENIGN
     Route: 065

REACTIONS (2)
  - Drug intolerance [Unknown]
  - Thrombocytopenia [Unknown]
